FAERS Safety Report 5726361-9 (Version None)
Quarter: 2008Q2

REPORT INFORMATION
  Report Type: 
  Country: None (occurrence: None)
  Receive Date: 20080502
  Receipt Date: 20080417
  Transmission Date: 20081010
  Serious: Yes (Other)
  Sender: FDA-Public Use
  Company Number: CN-NOVOPROD-273994

PATIENT
  Age: 24 Year
  Sex: Female
  Weight: 59 kg

DRUGS (4)
  1. NOVOLIN R [Suspect]
     Indication: TYPE 1 DIABETES MELLITUS
     Dates: start: 20080317, end: 20080317
  2. NOVOLIN R [Suspect]
  3. NOVOLIN R [Suspect]
     Dates: start: 20080317, end: 20080317
  4. ENALAPRIL [Concomitant]
     Dosage: 20 MG, QD
     Dates: start: 20010701

REACTIONS (5)
  - BLOOD GLUCOSE INCREASED [None]
  - DRY MOUTH [None]
  - DYSPNOEA [None]
  - PHARYNGOLARYNGEAL PAIN [None]
  - VOMITING [None]
